FAERS Safety Report 17092928 (Version 1)
Quarter: 2019Q4

REPORT INFORMATION
  Report Type: Spontaneous
  Country: US (occurrence: US)
  Receive Date: 20191101
  Receipt Date: 20191101
  Transmission Date: 20200122
  Serious: Yes (Hospitalization)
  Sender: FDA-Public Use
  Company Number: None

PATIENT
  Age: 80 Year

DRUGS (13)
  1. DILTIAZEM. [Concomitant]
     Active Substance: DILTIAZEM
  2. FLUTICASONE. [Concomitant]
     Active Substance: FLUTICASONE
  3. METOPROLOL. [Concomitant]
     Active Substance: METOPROLOL
  4. THEOPHYLKLINE [Concomitant]
  5. ATORVASTATIN [Concomitant]
     Active Substance: ATORVASTATIN
  6. XARLATO [Concomitant]
  7. AMIODARONE [Concomitant]
     Active Substance: AMIODARONE
  8. LEVALBUTEROL. [Concomitant]
     Active Substance: LEVALBUTEROL
  9. MEDROXYPR [Concomitant]
  10. GABAPENTIN. [Concomitant]
     Active Substance: GABAPENTIN
  11. FUROSEMIDE. [Concomitant]
     Active Substance: FUROSEMIDE
  12. TOBRAMYCIN NEB 300MG/5ML [Suspect]
     Active Substance: TOBRAMYCIN
     Indication: PRODUCT USED FOR UNKNOWN INDICATION
     Dates: start: 20190706
  13. ANORO ELLIPTA [Concomitant]
     Active Substance: UMECLIDINIUM BROMIDE\VILANTEROL TRIFENATATE

REACTIONS (2)
  - Unevaluable event [None]
  - Therapy cessation [None]

NARRATIVE: CASE EVENT DATE: 201910
